FAERS Safety Report 25519567 (Version 1)
Quarter: 2025Q3

REPORT INFORMATION
  Report Type: Spontaneous
  Country: JP (occurrence: JP)
  Receive Date: 20250704
  Receipt Date: 20250704
  Transmission Date: 20251020
  Serious: Yes (Death, Other)
  Sender: AMGEN
  Company Number: JP-AMGEN-JPNSP2025126468

PATIENT
  Age: 35 Year
  Sex: Male

DRUGS (8)
  1. ROMIPLOSTIM [Suspect]
     Active Substance: ROMIPLOSTIM
     Indication: Aplastic anaemia
     Dosage: 10 MICROGRAM/KILOGRAM, QWK
     Route: 065
  2. ROMIPLOSTIM [Suspect]
     Active Substance: ROMIPLOSTIM
     Indication: Bone marrow failure
     Dosage: 20 MICROGRAM/KILOGRAM, QWK
     Route: 065
  3. ROMIPLOSTIM [Suspect]
     Active Substance: ROMIPLOSTIM
     Dosage: 10 MICROGRAM/KILOGRAM, QWK
     Route: 065
  4. ROMIPLOSTIM [Suspect]
     Active Substance: ROMIPLOSTIM
     Dosage: 15 MICROGRAM/KILOGRAM, QWK
     Route: 065
  5. ROMIPLOSTIM [Suspect]
     Active Substance: ROMIPLOSTIM
     Dosage: 20 MICROGRAM/KILOGRAM, QWK (FOR 5 MONTHS) (MAINTAINED DOSE)
     Route: 065
  6. ROMIPLOSTIM [Suspect]
     Active Substance: ROMIPLOSTIM
     Dosage: 15 MICROGRAM/KILOGRAM, QWK
     Route: 065
  7. CYCLOSPORINE [Concomitant]
     Active Substance: CYCLOSPORINE
     Indication: Aplastic anaemia
  8. CYCLOSPORINE [Concomitant]
     Active Substance: CYCLOSPORINE
     Indication: Prophylaxis against graft versus host disease

REACTIONS (6)
  - Graft versus host disease in gastrointestinal tract [Fatal]
  - Chronic graft versus host disease [Unknown]
  - Bone marrow failure [Unknown]
  - Drug effective for unapproved indication [Unknown]
  - Drug ineffective for unapproved indication [Unknown]
  - Off label use [Unknown]
